FAERS Safety Report 13521511 (Version 1)
Quarter: 2017Q2

REPORT INFORMATION
  Report Type: Spontaneous
  Country: US (occurrence: US)
  Receive Date: 20170506
  Receipt Date: 20170506
  Transmission Date: 20170830
  Serious: Yes (Hospitalization)
  Sender: FDA-Public Use
  Company Number: None

PATIENT
  Age: 39 Year
  Sex: Female
  Weight: 63 kg

DRUGS (4)
  1. BCAA POWDER [Concomitant]
  2. CYTOTEC [Suspect]
     Active Substance: MISOPROSTOL
     Indication: ABORTION
     Dosage: ?          QUANTITY:2 TABLET(S);?
     Route: 067
     Dates: start: 20170505, end: 20170505
  3. MULTI VITAMIN [Concomitant]
     Active Substance: VITAMINS
  4. PROTEIN POWDER [Concomitant]

REACTIONS (7)
  - Abdominal pain upper [None]
  - Fall [None]
  - Hyperhidrosis [None]
  - Loss of consciousness [None]
  - Dyspnoea [None]
  - Muscle spasms [None]
  - Circulatory collapse [None]

NARRATIVE: CASE EVENT DATE: 20170505
